FAERS Safety Report 16237276 (Version 1)
Quarter: 2019Q2

REPORT INFORMATION
  Report Type: Spontaneous
  Country: FR (occurrence: FR)
  Receive Date: 20190425
  Receipt Date: 20190425
  Transmission Date: 20190711
  Serious: Yes (Hospitalization)
  Sender: FDA-Public Use
  Company Number: FR-SA-2019SA113411

PATIENT
  Age: 88 Year
  Sex: Female

DRUGS (1)
  1. DUPIXENT [Suspect]
     Active Substance: DUPILUMAB
     Indication: PRURIGO
     Dosage: 1 DF
     Route: 058
     Dates: start: 20190308, end: 20190308

REACTIONS (1)
  - Tongue oedema [Recovered/Resolved]

NARRATIVE: CASE EVENT DATE: 20190310
